FAERS Safety Report 18041747 (Version 1)
Quarter: 2020Q3

REPORT INFORMATION
  Report Type: Spontaneous
  Country: GB (occurrence: GB)
  Receive Date: 20200720
  Receipt Date: 20200720
  Transmission Date: 20201103
  Serious: Yes (Life-Threatening)
  Sender: FDA-Public Use
  Company Number: GB-TEVA-2020-GB-1801403

PATIENT
  Age: 36 Year
  Sex: Female
  Weight: 70 kg

DRUGS (3)
  1. MONTELUKAST [Concomitant]
     Active Substance: MONTELUKAST SODIUM
  2. NITROFURANTOIN. [Suspect]
     Active Substance: NITROFURANTOIN
     Indication: ESCHERICHIA URINARY TRACT INFECTION
     Dosage: 100MG (3 DAYS) BUT IT WASN^T WORKING SO MY G.P PRESCRIBED MORE ON 22ND JUNE 2020
     Route: 048
     Dates: start: 20200611, end: 20200626
  3. SALBUTAMOL [Concomitant]
     Active Substance: ALBUTEROL

REACTIONS (3)
  - Dyspepsia [Recovering/Resolving]
  - Heart rate abnormal [Recovering/Resolving]
  - Gastritis [Recovering/Resolving]
